FAERS Safety Report 10280170 (Version 1)
Quarter: 2014Q3

REPORT INFORMATION
  Report Type: Spontaneous
  Country: US (occurrence: None)
  Receive Date: 20140701
  Receipt Date: 20140701
  Transmission Date: 20150326
  Serious: No
  Sender: FDA-Public Use
  Company Number: None

PATIENT
  Age: 61 Year
  Sex: Male
  Weight: 102.97 kg

DRUGS (2)
  1. RISPERDAL [Suspect]
     Active Substance: RISPERIDONE
     Indication: SCHIZOPHRENIA, PARANOID TYPE
  2. ABILIFY [Suspect]
     Active Substance: ARIPIPRAZOLE

REACTIONS (10)
  - Vertigo [None]
  - Drug interaction [None]
  - Glucose tolerance impaired [None]
  - Vomiting [None]
  - Cardiac murmur [None]
  - Dyspnoea [None]
  - Abdominal discomfort [None]
  - Excessive eye blinking [None]
  - Low density lipoprotein abnormal [None]
  - Insomnia [None]

NARRATIVE: CASE EVENT DATE: 20140212
